FAERS Safety Report 16962649 (Version 1)
Quarter: 2019Q4

REPORT INFORMATION
  Report Type: Spontaneous
  Country: CA (occurrence: CA)
  Receive Date: 20191025
  Receipt Date: 20191025
  Transmission Date: 20200122
  Serious: Yes (Other)
  Sender: FDA-Public Use
  Company Number: CA-TEVA-2019-CA-1126926

PATIENT
  Age: 21 Year
  Sex: Female

DRUGS (4)
  1. FLAGYL [Concomitant]
     Active Substance: METRONIDAZOLE\METRONIDAZOLE HYDROCHLORIDE
  2. NOVAMOXIN [Concomitant]
     Active Substance: AMOXICILLIN
  3. MEDROXYPROGESTERONE ACETATE. [Suspect]
     Active Substance: MEDROXYPROGESTERONE ACETATE
     Indication: PRODUCT USED FOR UNKNOWN INDICATION
     Route: 065
  4. APO-AMOXI [Concomitant]
     Active Substance: AMOXICILLIN

REACTIONS (4)
  - Osteopenia [Recovering/Resolving]
  - Fall [Recovering/Resolving]
  - Foot fracture [Recovering/Resolving]
  - Osteoporosis [Recovering/Resolving]
